FAERS Safety Report 17503787 (Version 1)
Quarter: 2020Q1

REPORT INFORMATION
  Report Type: Spontaneous
  Country: US (occurrence: US)
  Receive Date: 20200305
  Receipt Date: 20200305
  Transmission Date: 20200409
  Serious: No
  Sender: FDA-Public Use
  Company Number: US-ROCHE-2358049

PATIENT
  Age: 14 Year
  Sex: Female
  Weight: 83.99 kg

DRUGS (3)
  1. XOLAIR [Suspect]
     Active Substance: OMALIZUMAB
     Indication: URTICARIA AQUAGENIC
     Dosage: PATIENT RECEIVED 1 SHOT IN EACH ARM
     Route: 065
     Dates: start: 20190509
  2. SINGULAIR [Concomitant]
     Active Substance: MONTELUKAST SODIUM
  3. XYZAL [Concomitant]
     Active Substance: LEVOCETIRIZINE DIHYDROCHLORIDE

REACTIONS (5)
  - Off label use [Unknown]
  - Urticaria [Unknown]
  - Paraesthesia [Not Recovered/Not Resolved]
  - Intentional product use issue [Unknown]
  - Hypoaesthesia [Not Recovered/Not Resolved]

NARRATIVE: CASE EVENT DATE: 20190509
